FAERS Safety Report 7206434-4 (Version None)
Quarter: 2011Q1

REPORT INFORMATION
  Report Type: 
  Country: None (occurrence: None)
  Receive Date: 20110103
  Receipt Date: 20101230
  Transmission Date: 20110831
  Serious: Yes (Life-Threatening)
  Sender: FDA-Public Use
  Company Number: EG-TYCO HEALTHCARE/MALLINCKRODT-T201002467

PATIENT
  Age: 25 Year
  Sex: Male
  Weight: 70 kg

DRUGS (2)
  1. OPTIRAY 350 [Suspect]
     Indication: COMPUTERISED TOMOGRAM
     Dosage: 30 ML, SINGLE
     Route: 042
     Dates: start: 20101019, end: 20101019
  2. SOLU-CORTEF [Concomitant]

REACTIONS (4)
  - DYSPNOEA [None]
  - BRONCHOSPASM [None]
  - WHEEZING [None]
  - NASAL CONGESTION [None]
